FAERS Safety Report 21082265 (Version 1)
Quarter: 2022Q3

REPORT INFORMATION
  Report Type: Spontaneous
  Country: NL (occurrence: NL)
  Receive Date: 20220714
  Receipt Date: 20220714
  Transmission Date: 20221027
  Serious: Yes (Life-Threatening, Hospitalization)
  Sender: FDA-Public Use
  Company Number: None

PATIENT
  Age: 81 Year
  Sex: Male
  Weight: 73 kg

DRUGS (7)
  1. VALACYCLOVIR HYDROCHLORIDE [Suspect]
     Active Substance: VALACYCLOVIR HYDROCHLORIDE
     Indication: Ophthalmic herpes simplex
     Dosage: 3X A DAY 2 PIECES , FORM STRENGTH 500MG / BRAND NAME NOT SPECIFIED , UNIT DOSE : 1000 MG , FREQUENCY
     Dates: start: 20220608, end: 20220611
  2. AMLODIPINE SANDOZ (AS BESILATE) [Concomitant]
     Indication: Product used for unknown indication
     Dosage: FROM STRENGTH 5 MG (MILLIGRAM) AMLODIPINE TABLET   5MG / AMLODIPINE SANDOZ TABLET  5MG (ALS BESILAAT
  3. GLUCIENT SR [Concomitant]
     Indication: Product used for unknown indication
     Dosage: MODIFIED RELEASE TABLET, 500 MG (MILLIGRAM) ,METFORMINE TABLET MGA  500MG / GLUCIENT SR TABLET MVA 5
  4. COZAAR [Concomitant]
     Active Substance: LOSARTAN POTASSIUM
     Indication: Product used for unknown indication
     Dosage: FORM STRENGTH  100 MG (MILLIGRAM) ,LOSARTAN TABLET FO 100MG / COZAAR  ,THERAPY START DATE AND END DA
  5. ESOMEPRAZOLE [Concomitant]
     Active Substance: ESOMEPRAZOLE
     Indication: Product used for unknown indication
     Dosage: FORM STRENGTH  20 MG (MILLIGRAM) ,ESOMEPRAZOL CAPSULE MSR 20MG / ESOMEPRAZOL ACTAVIS CAPSULE MSR 20M
  6. VESICARE [Concomitant]
     Active Substance: SOLIFENACIN SUCCINATE
     Indication: Product used for unknown indication
     Dosage: FORM STRENGTH  5 MG (MILLIGRAM) ,SOLIFENACIN TABLET 5MG / VESICARE ,THERAPY START DATE AND END DATE
  7. DEXAMETHASONE SODIUM PHOSPHATE [Concomitant]
     Active Substance: DEXAMETHASONE SODIUM PHOSPHATE
     Indication: Product used for unknown indication
     Dosage: FORM STRENGTH : 1 MG/ML,DEXAMETHASON EYEDR 1MG/ML (PHOSPHATE) / MONOFREE DEXAMETHASON EYEDR 1MG/ML M

REACTIONS (1)
  - Acute kidney injury [Recovering/Resolving]

NARRATIVE: CASE EVENT DATE: 20220611
